FAERS Safety Report 4644434-9 (Version None)
Quarter: 2005Q2

REPORT INFORMATION
  Report Type: 
  Country: None (occurrence: None)
  Receive Date: 20050331
  Receipt Date: 20041202
  Transmission Date: 20051028
  Serious: No
  Sender: FDA-Public Use
  Company Number: 04P-163-0282374-00

PATIENT
  Age: 33 Year
  Sex: Female
  Weight: 60.3284 kg

DRUGS (7)
  1. HUMIRA [Suspect]
     Indication: RHEUMATOID ARTHRITIS
     Dosage: 40 MG, 1 IN 2 WK, SUBCUTANEOUS
     Route: 058
     Dates: start: 20041001
  2. OXYCODONE HCL [Concomitant]
  3. CARISOPRODOL [Concomitant]
  4. FLUTICASONE PROPIONATE [Concomitant]
  5. OXYCOCET [Concomitant]
  6. ALPRAZOLAM [Concomitant]
  7. ZOLPIDEM TARTRATE [Concomitant]

REACTIONS (10)
  - EYE PAIN [None]
  - FEELING ABNORMAL [None]
  - FEELING HOT [None]
  - HAIR GROWTH ABNORMAL [None]
  - LIVEDO RETICULARIS [None]
  - OPEN WOUND [None]
  - PYREXIA [None]
  - RASH [None]
  - RASH MACULO-PAPULAR [None]
  - SKIN TIGHTNESS [None]
